FAERS Safety Report 7490318-0 (Version None)
Quarter: 2011Q2

REPORT INFORMATION
  Report Type: 
  Country: None (occurrence: None)
  Receive Date: 20110519
  Receipt Date: 20110506
  Transmission Date: 20111010
  Serious: Yes (Other)
  Sender: FDA-Public Use
  Company Number: FR-SOLVAY-00211003873

PATIENT
  Age: 906 Month
  Sex: Female

DRUGS (6)
  1. HUMALOG [Suspect]
     Indication: DIABETES MELLITUS
     Dosage: DAILY DOSE:  UNKNOWN
     Route: 065
  2. PERINDOPRIL ERBUMINE [Suspect]
     Indication: HYPERTENSION
     Dosage: DAILY DOSE:  UNKNOWN
     Route: 048
  3. LASIX [Suspect]
     Indication: HYPERTENSION
     Dosage: DAILY DOSE:  UNKNOWN
     Route: 048
  4. PROPRANOLOL [Suspect]
     Indication: TREMOR
     Dosage: DAILY DOSE:  UNKNOWN
     Route: 048
     Dates: start: 20110101
  5. MODOPAR [Suspect]
     Indication: PARKINSONISM
     Dosage: DAILY DOSE:  UNKNOWN
     Route: 048
  6. MEDIATOR [Suspect]
     Indication: PRODUCT USED FOR UNKNOWN INDICATION
     Dosage: DAILY DOSE:  UNKNOWN
     Route: 048
     Dates: start: 19960101, end: 20030101

REACTIONS (3)
  - LEUKOCYTOSIS [None]
  - DYSPNOEA EXERTIONAL [None]
  - INTERSTITIAL LUNG DISEASE [None]
